FAERS Safety Report 7093640-5 (Version None)
Quarter: 2010Q4

REPORT INFORMATION
  Report Type: 
  Country: None (occurrence: None)
  Receive Date: 20101110
  Receipt Date: 20090928
  Transmission Date: 20110411
  Serious: No
  Sender: FDA-Public Use
  Company Number: US-KINGPHARMUSA00001-K200901191

PATIENT
  Age: 74 Year
  Sex: Female

DRUGS (3)
  1. FLECTOR [Suspect]
     Indication: JOINT INJURY
     Dosage: 1 PATCH, BID
     Route: 061
     Dates: start: 20090801
  2. INSULIN [Concomitant]
     Indication: DIABETES MELLITUS
     Dosage: UNK
     Route: 058
  3. PREVACID [Concomitant]
     Indication: GASTROOESOPHAGEAL REFLUX DISEASE
     Dosage: UNK
     Route: 048

REACTIONS (3)
  - APPLICATION SITE PRURITUS [None]
  - DIARRHOEA [None]
  - PRURITUS [None]
